FAERS Safety Report 4468303-2 (Version None)
Quarter: 2004Q4

REPORT INFORMATION
  Report Type: 
  Country: None (occurrence: None)
  Receive Date: 20041007
  Receipt Date: 20040930
  Transmission Date: 20050328
  Serious: Yes (Disabling)
  Sender: FDA-Public Use
  Company Number: US-MERCK-0410USA00149

PATIENT
  Sex: Female

DRUGS (2)
  1. PROZAC [Concomitant]
     Route: 065
     Dates: start: 19940101
  2. VIOXX [Suspect]
     Route: 048
     Dates: start: 20020101, end: 20040928

REACTIONS (3)
  - FATIGUE [None]
  - SPEECH DISORDER [None]
  - TRANSIENT ISCHAEMIC ATTACK [None]
